FAERS Safety Report 12857234 (Version 2)
Quarter: 2016Q4

REPORT INFORMATION
  Report Type: Report from Study
  Country: IT (occurrence: IT)
  Receive Date: 20161018
  Receipt Date: 20161110
  Transmission Date: 20170207
  Serious: Yes (Hospitalization)
  Sender: FDA-Public Use
  Company Number: IT-PFIZER INC-2016473539

PATIENT
  Age: 52 Year
  Sex: Male

DRUGS (4)
  1. NORMIX [Concomitant]
     Active Substance: RIFAXIMIN
     Dosage: UNK
  2. XATRAL [Concomitant]
     Active Substance: ALFUZOSIN
     Dosage: UNK UNK, 1X/DAY
  3. SUTENT [Suspect]
     Active Substance: SUNITINIB MALATE
     Indication: RENAL CANCER METASTATIC
     Dosage: 50 MG, 1X/DAY
     Route: 048
     Dates: start: 20160621
  4. PAROXETINE. [Concomitant]
     Active Substance: PAROXETINE
     Dosage: UNK

REACTIONS (8)
  - Liver disorder [Recovered/Resolved]
  - Jaundice [Recovered/Resolved]
  - Transaminases increased [Recovered/Resolved]
  - Vomiting [Unknown]
  - Asthenia [Unknown]
  - Blood bilirubin increased [Recovered/Resolved]
  - Diarrhoea [Unknown]
  - Pruritus [Unknown]

NARRATIVE: CASE EVENT DATE: 201609
